FAERS Safety Report 4894094-7 (Version None)
Quarter: 2005Q4

REPORT INFORMATION
  Report Type: 
  Country: None (occurrence: None)
  Receive Date: 20051223
  Receipt Date: 20051027
  Transmission Date: 20060501
  Serious: No
  Sender: FDA-Public Use
  Company Number: 2005PV003589

PATIENT
  Age: 77 Year
  Sex: Male
  Weight: 226.2 kg

DRUGS (14)
  1. SYMLIN [Suspect]
     Indication: DIABETES MELLITUS NON-INSULIN-DEPENDENT
     Dosage: 120 MCG; SC
     Route: 058
     Dates: start: 20051013, end: 20051021
  2. ACTOS [Concomitant]
  3. GLIPIZIDE [Concomitant]
  4. ASPIRIN [Concomitant]
  5. TRICOR [Concomitant]
  6. ALLOPURINOL [Concomitant]
  7. SOTALOL HCL [Concomitant]
  8. CRESTOR [Concomitant]
  9. COUMADIN [Concomitant]
  10. PROTONIX [Concomitant]
  11. LEXAPRO [Concomitant]
  12. SEROQUEL [Concomitant]
  13. MAGNESIUM [Concomitant]
  14. BYETTA [Concomitant]

REACTIONS (2)
  - HALLUCINATION [None]
  - NAUSEA [None]
